FAERS Safety Report 8544015-0 (Version None)
Quarter: 2012Q3

REPORT INFORMATION
  Report Type: 
  Country: None (occurrence: None)
  Receive Date: 20120719
  Receipt Date: 20120719
  Transmission Date: 20120928
  Serious: Yes (Hospitalization)
  Sender: FDA-Public Use
  Company Number: None

PATIENT
  Sex: Female
  Weight: 56.246 kg

DRUGS (7)
  1. TAXOTERE [Suspect]
     Indication: LUNG NEOPLASM
     Dosage: 120 MG IN 250ML OF NS ONCE IV DRIP
     Route: 041
  2. FLUTICASONE PROPIONATE/SALMETEROL [Concomitant]
  3. TIOTROPIUM [Concomitant]
  4. FOLIC ACID [Concomitant]
  5. GLUCOSAMINE [Concomitant]
  6. DEXAMETHASONE [Concomitant]
  7. OMEPRAZOLE [Concomitant]

REACTIONS (5)
  - PALPITATIONS [None]
  - ATRIAL FLUTTER [None]
  - DYSPNOEA [None]
  - TACHYCARDIA [None]
  - CHILLS [None]
